FAERS Safety Report 6119212-4 (Version None)
Quarter: 2009Q1

REPORT INFORMATION
  Report Type: 
  Country: None (occurrence: None)
  Receive Date: 20090311
  Receipt Date: 20090303
  Transmission Date: 20090719
  Serious: Yes (Other)
  Sender: FDA-Public Use
  Company Number: 2009AL001276

PATIENT
  Sex: Male

DRUGS (3)
  1. IBUPROFEN TABLETS [Suspect]
  2. ACETYLSALICYLIC ACID [Concomitant]
  3. PAROXETINE HCL [Concomitant]

REACTIONS (4)
  - JOB DISSATISFACTION [None]
  - OVERDOSE [None]
  - PARTNER STRESS [None]
  - SUICIDE ATTEMPT [None]
